FAERS Safety Report 6358328-4 (Version None)
Quarter: 2009Q3

REPORT INFORMATION
  Report Type: 
  Country: None (occurrence: None)
  Receive Date: 20090916
  Receipt Date: 20090911
  Transmission Date: 20100115
  Serious: Yes (Life-Threatening, Hospitalization)
  Sender: FDA-Public Use
  Company Number: US-CELGENEUS-163-21880-09072045

PATIENT
  Sex: Female

DRUGS (2)
  1. REVLIMID [Suspect]
     Route: 048
     Dates: start: 20081001
  2. WARFARIN [Concomitant]
     Route: 065

REACTIONS (3)
  - FALL [None]
  - INTRACRANIAL HAEMATOMA [None]
  - SUBARACHNOID HAEMORRHAGE [None]
